FAERS Safety Report 8922416 (Version 1)
Quarter: 2012Q4

REPORT INFORMATION
  Report Type: 
  Country: CH (occurrence: CH)
  Receive Date: 20121126
  Receipt Date: 20121126
  Transmission Date: 20130627
  Serious: Yes (Death)
  Sender: FDA-Public Use
  Company Number: CH-JNJFOC-20121109166

PATIENT
  Age: 84 Year
  Sex: Female

DRUGS (9)
  1. TRAMAL [Suspect]
     Indication: FIBROMYALGIA
     Route: 048
     Dates: start: 20120821, end: 20120821
  2. ANXIOLIT [Suspect]
     Indication: PRODUCT USED FOR UNKNOWN INDICATION
     Route: 065
     Dates: end: 20120822
  3. CIPRALEX [Suspect]
     Indication: DEPRESSION
     Route: 048
     Dates: end: 20120822
  4. LEXOTANIL [Suspect]
     Indication: PRODUCT USED FOR UNKNOWN INDICATION
     Route: 048
     Dates: end: 20120822
  5. PARACETAMOL [Concomitant]
     Route: 048
  6. AMLODIPINE [Concomitant]
     Route: 048
  7. ATACAND PLUS [Concomitant]
     Route: 065
  8. CALCIMAGON D3 [Concomitant]
     Route: 048
  9. IBUPROFEN [Concomitant]
     Indication: FIBROMYALGIA
     Route: 065

REACTIONS (3)
  - Fall [Fatal]
  - Cerebrovascular accident [Fatal]
  - Spinal fracture [Fatal]
